FAERS Safety Report 7708045-0 (Version None)
Quarter: 2011Q3

REPORT INFORMATION
  Report Type: 
  Country: None (occurrence: None)
  Receive Date: 20110825
  Receipt Date: 20110816
  Transmission Date: 20111222
  Serious: Yes (Hospitalization)
  Sender: FDA-Public Use
  Company Number: US-BRISTOL-MYERS SQUIBB COMPANY-15993827

PATIENT
  Age: 77 Year
  Sex: Male

DRUGS (9)
  1. NIFEDIPINE [Concomitant]
  2. CENTRUM [Concomitant]
  3. CETUXIMAB [Suspect]
     Indication: HEAD AND NECK CANCER
     Route: 065
     Dates: start: 20110408, end: 20110408
  4. TOPROL-XL [Concomitant]
  5. COZAAR [Concomitant]
  6. GARLIC [Concomitant]
     Dosage: TAB
  7. CARBOPLATIN [Suspect]
     Indication: HEAD AND NECK CANCER
     Route: 065
     Dates: start: 20110408
  8. FLUOROURACIL [Suspect]
     Indication: HEAD AND NECK CANCER
     Route: 065
     Dates: start: 20110408
  9. IBUPROFEN [Concomitant]

REACTIONS (1)
  - MYOCARDIAL INFARCTION [None]
